FAERS Safety Report 12729925 (Version 6)
Quarter: 2017Q2

REPORT INFORMATION
  Report Type: Spontaneous
  Country: US (occurrence: US)
  Receive Date: 20160909
  Receipt Date: 20170414
  Transmission Date: 20170830
  Serious: Yes (Disabling, Other)
  Sender: FDA-Public Use
  Company Number: US-SAOL THERAPEUTICS-2016SAO00576

PATIENT
  Age: 38 Year
  Sex: Male

DRUGS (13)
  1. FENTANYL. [Suspect]
     Active Substance: FENTANYL
     Indication: PAIN
     Dosage: 0.191 MG, \DAY
     Route: 037
  2. MORPHINE [Suspect]
     Active Substance: MORPHINE
     Route: 037
  3. CLONIDINE. [Suspect]
     Active Substance: CLONIDINE
     Dosage: 173.27 ?G, \DAY
  4. BACLOFEN. [Suspect]
     Active Substance: BACLOFEN
     Indication: POST LAMINECTOMY SYNDROME
     Dosage: 20.813 ?G, \DAY
  5. CLONIDINE. [Suspect]
     Active Substance: CLONIDINE
     Indication: PAIN
     Dosage: 131.05 ?G, \DAY
     Route: 037
  6. CLONIDINE. [Suspect]
     Active Substance: CLONIDINE
     Dosage: 36.50 ?G, \DAY
  7. BACLOFEN. [Suspect]
     Active Substance: BACLOFEN
     Dosage: 21.659 ?G, \DAY
     Route: 037
  8. BACLOFEN. [Suspect]
     Active Substance: BACLOFEN
     Dosage: 4.562 ?G, \DAY
     Route: 037
  9. CLONIDINE. [Suspect]
     Active Substance: CLONIDINE
     Indication: POST LAMINECTOMY SYNDROME
     Dosage: 1.665 ?G, \DAY
  10. BACLOFEN. [Suspect]
     Active Substance: BACLOFEN
     Indication: PAIN
     Dosage: 16.381 ?G, \DAY
     Route: 037
  11. FENTANYL. [Suspect]
     Active Substance: FENTANYL
     Dosage: 12.996 ?G, \DAY
     Route: 037
  12. FENTANYL. [Suspect]
     Active Substance: FENTANYL
     Indication: POST LAMINECTOMY SYNDROME
     Dosage: 8.909 MG, \DAY
  13. FENTANYL. [Suspect]
     Active Substance: FENTANYL
     Dosage: 1.953 ?G, \DAY

REACTIONS (12)
  - Intentional product use issue [Unknown]
  - Therapeutic product ineffective for unapproved indication [Not Recovered/Not Resolved]
  - Injury [Recovered/Resolved]
  - Drug withdrawal syndrome [Unknown]
  - Neuralgia [Unknown]
  - Unwanted awareness during anaesthesia [Recovered/Resolved]
  - Dyspnoea [Recovered/Resolved]
  - Mobility decreased [Unknown]
  - Arachnoiditis [Unknown]
  - Off label use [Unknown]
  - Complication associated with device [Unknown]
  - Malaise [Unknown]

NARRATIVE: CASE EVENT DATE: 19990202
